FAERS Safety Report 11896391 (Version 1)
Quarter: 2016Q1

REPORT INFORMATION
  Report Type: Spontaneous
  Country: US (occurrence: US)
  Receive Date: 20160107
  Receipt Date: 20160107
  Transmission Date: 20160526
  Serious: Yes (Other)
  Sender: FDA-Public Use
  Company Number: US-MYLANLABS-2016M1000403

PATIENT

DRUGS (4)
  1. BUDESONIDE. [Suspect]
     Active Substance: BUDESONIDE
     Indication: ASTHMA
     Dosage: 180 MICROG/SPRAY TWO PUFF PER DAY WHICH WAS LATER INCREASED
     Route: 055
  2. 3 TC/AZT ELEA [Concomitant]
     Indication: PRODUCT USED FOR UNKNOWN INDICATION
     Route: 065
  3. BUDESONIDE. [Suspect]
     Active Substance: BUDESONIDE
     Dosage: 180 MICROG/SPRAY 2 PUFF TWICE A DAY
     Route: 055
  4. LOPINAVIR W/RITONAVIR [Interacting]
     Active Substance: LOPINAVIR\RITONAVIR
     Indication: HIV INFECTION
     Dosage: RITONAVIR AT 100 MG TWICE A DAY
     Route: 065

REACTIONS (2)
  - Drug interaction [Unknown]
  - Adrenal insufficiency [Recovered/Resolved]
